FAERS Safety Report 13704709 (Version 2)
Quarter: 2018Q4

REPORT INFORMATION
  Report Type: Report from Study
  Country: None (occurrence: BR)
  Receive Date: 20170630
  Receipt Date: 20181230
  Transmission Date: 20190204
  Serious: Yes (Other)
  Sender: FDA-Public Use
  Company Number: BR-ABBVIE-17K-020-2019099-00

PATIENT
  Age: 37 Year
  Sex: Female
  Weight: 83 kg

DRUGS (6)
  1. EUTHYROX [Concomitant]
     Active Substance: LEVOTHYROXINE SODIUM
     Indication: HYPOTHYROIDISM
     Route: 048
     Dates: start: 2012
  2. ELANI 28 [Concomitant]
     Indication: CONTRACEPTION
     Route: 048
     Dates: start: 2003
  3. HUMIRA [Suspect]
     Active Substance: ADALIMUMAB
     Indication: ANKYLOSING SPONDYLITIS
     Route: 058
     Dates: start: 20160622, end: 20181123
  4. PAMELOR [Concomitant]
     Active Substance: NORTRIPTYLINE HYDROCHLORIDE
     Indication: FIBROMYALGIA
     Dates: start: 201702
  5. VENLAFAXINE [Concomitant]
     Active Substance: VENLAFAXINE HYDROCHLORIDE
     Indication: DEPRESSION
     Route: 048
     Dates: start: 201611
  6. PREGABALIN. [Concomitant]
     Active Substance: PREGABALIN
     Indication: FIBROMYALGIA
     Route: 048
     Dates: start: 2014

REACTIONS (17)
  - Crying [Recovering/Resolving]
  - Tooth disorder [Recovered/Resolved]
  - Fatigue [Not Recovered/Not Resolved]
  - Swelling [Not Recovered/Not Resolved]
  - Abdominal distension [Not Recovered/Not Resolved]
  - Insomnia [Unknown]
  - Dyspnoea [Not Recovered/Not Resolved]
  - Immunodeficiency [Not Recovered/Not Resolved]
  - Inflammation [Not Recovered/Not Resolved]
  - Alopecia [Not Recovered/Not Resolved]
  - Weight increased [Not Recovered/Not Resolved]
  - Dysuria [Unknown]
  - Irritability [Recovering/Resolving]
  - Depression [Recovering/Resolving]
  - Influenza [Not Recovered/Not Resolved]
  - Urinary tract infection [Unknown]
  - Influenza [Unknown]

NARRATIVE: CASE EVENT DATE: 2016
